FAERS Safety Report 6383721-3 (Version None)
Quarter: 2009Q4

REPORT INFORMATION
  Report Type: 
  Country: None (occurrence: None)
  Receive Date: 20091001
  Receipt Date: 20090921
  Transmission Date: 20100525
  Serious: Yes (Hospitalization)
  Sender: FDA-Public Use
  Company Number: US-JNJFOC-20090906294

PATIENT
  Sex: Female
  Weight: 68.5 kg

DRUGS (2)
  1. REMICADE [Suspect]
     Indication: INFLAMMATORY BOWEL DISEASE
     Route: 042
     Dates: start: 20090304, end: 20090804
  2. AMPHOTERICIN B [Suspect]
     Indication: HISTOPLASMOSIS

REACTIONS (2)
  - BLOOD CREATININE INCREASED [None]
  - HISTOPLASMOSIS [None]
